FAERS Safety Report 5615517-1 (Version None)
Quarter: 2008Q1

REPORT INFORMATION
  Report Type: 
  Country: None (occurrence: None)
  Receive Date: 20080206
  Receipt Date: 20080204
  Transmission Date: 20080703
  Serious: Yes (Death)
  Sender: FDA-Public Use
  Company Number: NO-GENENTECH-255369

PATIENT

DRUGS (4)
  1. METALYSE [Suspect]
     Indication: ACUTE MYOCARDIAL INFARCTION
     Dosage: 100 U/KG, SINGLE
  2. ASPIRIN [Suspect]
     Indication: ACUTE MYOCARDIAL INFARCTION
     Dosage: 300 MG, SINGLE
  3. ENOXAPARIN SODIUM [Suspect]
     Indication: ACUTE MYOCARDIAL INFARCTION
     Dosage: 30 MG, SINGLE
     Route: 042
  4. ENOXAPARIN SODIUM [Suspect]
     Dosage: 1 MG/KG, SINGLE
     Route: 058

REACTIONS (1)
  - DEATH [None]
